FAERS Safety Report 25897281 (Version 1)
Quarter: 2025Q4

REPORT INFORMATION
  Report Type: Spontaneous
  Country: US (occurrence: None)
  Receive Date: 20251008
  Receipt Date: 20251008
  Transmission Date: 20260118
  Serious: Yes (Other)
  Sender: FDA-CTU
  Company Number: None

PATIENT
  Sex: Male

DRUGS (11)
  1. VYNDAMAX [Suspect]
     Active Substance: TAFAMIDIS
     Indication: Acquired ATTR amyloidosis
     Dosage: TAKE 1 CAPSULE BY MOUTH ONCE DAILY
     Route: 048
     Dates: start: 20240426
  2. ALLOPURINOL TAB 300MG [Concomitant]
  3. ASPIRIN [Concomitant]
     Active Substance: ASPIRIN
  4. ATORVASTATIN [Concomitant]
     Active Substance: ATORVASTATIN
  5. EZETIMIBE [Concomitant]
     Active Substance: EZETIMIBE
  6. FLUOROURACIL [Concomitant]
     Active Substance: FLUOROURACIL
  7. FUROSEMIDE [Concomitant]
     Active Substance: FUROSEMIDE
  8. JARDIANCE [Concomitant]
     Active Substance: EMPAGLIFLOZIN
  9. LEVOTHYROXIN TAB BBMCG [Concomitant]
  10. LOSARTAN POT TAB 50MG [Concomitant]
  11. METOPROL sue TAB 100MG ER [Concomitant]

REACTIONS (3)
  - Ulcer haemorrhage [None]
  - Fatigue [None]
  - Internal haemorrhage [None]
